FAERS Safety Report 6531547-X (Version None)
Quarter: 2010Q1

REPORT INFORMATION
  Report Type: 
  Country: None (occurrence: None)
  Receive Date: 20100108
  Receipt Date: 20100107
  Transmission Date: 20100710
  Serious: Yes (Death)
  Sender: FDA-Public Use
  Company Number: IT-SANOFI-AVENTIS-2010SA000758

PATIENT
  Age: 70 Year
  Sex: Female

DRUGS (3)
  1. OXALIPLATIN [Suspect]
     Indication: COLON CANCER
     Route: 065
  2. BEVACIZUMAB [Suspect]
     Indication: COLON CANCER
     Route: 065
  3. CAPECITABINE [Suspect]
     Indication: COLON CANCER
     Route: 065

REACTIONS (1)
  - LARGE INTESTINE PERFORATION [None]
